FAERS Safety Report 6370501-8 (Version None)
Quarter: 2009Q3

REPORT INFORMATION
  Report Type: 
  Country: None (occurrence: None)
  Receive Date: 20090923
  Receipt Date: 20090911
  Transmission Date: 20100115
  Serious: Yes (Other)
  Sender: FDA-Public Use
  Company Number: US-PFIZER INC-2009268651

PATIENT
  Sex: Female
  Weight: 61.22 kg

DRUGS (3)
  1. CLEOCIN [Suspect]
     Indication: ENDODONTIC PROCEDURE
     Dates: start: 20090801, end: 20090801
  2. FLAGYL [Suspect]
     Indication: INFECTION
     Dosage: FREQUENCY: 3X/DAY,
     Route: 048
     Dates: start: 20090812, end: 20090822
  3. SYNTHROID [Concomitant]
     Indication: HYPOTHYROIDISM

REACTIONS (5)
  - ABDOMINAL PAIN [None]
  - BACK PAIN [None]
  - DYSPHAGIA [None]
  - DYSSTASIA [None]
  - ENTEROCOLITIS INFECTIOUS [None]
